FAERS Safety Report 7941542-1 (Version None)
Quarter: 2011Q4

REPORT INFORMATION
  Report Type: 
  Country: None (occurrence: None)
  Receive Date: 20111128
  Receipt Date: 20111121
  Transmission Date: 20120403
  Serious: Yes (Hospitalization)
  Sender: FDA-Public Use
  Company Number: US-GILEAD-2011-0047158

PATIENT
  Age: 34 Year
  Sex: Female

DRUGS (2)
  1. LETAIRIS [Suspect]
     Indication: PULMONARY HYPERTENSION
     Dosage: 10 MG,
     Route: 048
     Dates: start: 20090409
  2. REVATIO [Concomitant]

REACTIONS (4)
  - COUGH [None]
  - SYNCOPE [None]
  - GASTROENTERITIS VIRAL [None]
  - CHEST PAIN [None]
